FAERS Safety Report 14297004 (Version 1)
Quarter: 2017Q4

REPORT INFORMATION
  Report Type: Report from Study
  Country: CA (occurrence: CA)
  Receive Date: 20171218
  Receipt Date: 20171218
  Transmission Date: 20180321
  Serious: Yes (Hospitalization)
  Sender: FDA-Public Use
  Company Number: CA-GLAXOSMITHKLINE-CA2017GSK191846

PATIENT
  Sex: Female

DRUGS (6)
  1. FLUTICASONE FUROATE + VILANTEROL TRIFENATATE [Suspect]
     Active Substance: FLUTICASONE FUROATE\VILANTEROL TRIFENATATE
     Indication: ASTHMA
     Dosage: 200 UG, UNK
     Dates: start: 201711
  2. FUROSEMIDE. [Suspect]
     Active Substance: FUROSEMIDE
     Indication: ASTHMA
     Dosage: 20 MG, BID
  3. MONTELUKAST [Suspect]
     Active Substance: MONTELUKAST SODIUM
     Indication: ASTHMA
     Dosage: 20 MG, QD
     Dates: start: 201711
  4. SINGULAIR [Suspect]
     Active Substance: MONTELUKAST SODIUM
     Indication: ASTHMA
     Dosage: UNK
     Dates: start: 201711
  5. COMBIVENT [Suspect]
     Active Substance: ALBUTEROL SULFATE\IPRATROPIUM BROMIDE
     Indication: ASTHMA
     Dosage: 20 MG, UNK
     Dates: start: 201711
  6. SPIRIVA [Suspect]
     Active Substance: TIOTROPIUM BROMIDE MONOHYDRATE
     Indication: ASTHMA
     Dosage: 2.5 MG, UNK
     Dates: start: 201711

REACTIONS (3)
  - Drug effect incomplete [Unknown]
  - Eosinophilia [Unknown]
  - Asthma [Unknown]
